FAERS Safety Report 23577971 (Version 2)
Quarter: 2024Q1

REPORT INFORMATION
  Report Type: Spontaneous
  Country: JP (occurrence: JP)
  Receive Date: 20240228
  Receipt Date: 20240320
  Transmission Date: 20240410
  Serious: Yes (Other)
  Sender: FDA-Public Use
  Company Number: JP-002147023-NVSJ2024JP002695

PATIENT
  Age: 86 Year
  Sex: Female

DRUGS (5)
  1. ENTRESTO [Suspect]
     Active Substance: SACUBITRIL\VALSARTAN
     Indication: Hypertension
     Dosage: 200 MG
     Route: 048
  2. ENTRESTO [Suspect]
     Active Substance: SACUBITRIL\VALSARTAN
     Dosage: 400 MG
     Route: 048
  3. AMLODIPINE [Suspect]
     Active Substance: AMLODIPINE BESYLATE
     Indication: Product used for unknown indication
     Dosage: 5 MG
     Route: 048
  4. SPIRONOLACTONE [Concomitant]
     Active Substance: SPIRONOLACTONE
     Indication: Product used for unknown indication
     Dosage: 25 MG
     Route: 065
  5. LORATADINE [Concomitant]
     Active Substance: LORATADINE
     Indication: Product used for unknown indication
     Dosage: 10 MG
     Route: 065

REACTIONS (8)
  - Hypokalaemia [Recovered/Resolved]
  - Cerebral infarction [Unknown]
  - Concomitant disease aggravated [Unknown]
  - Blood pressure decreased [Unknown]
  - Decreased appetite [Recovered/Resolved]
  - Drug ineffective [Unknown]
  - Adrenal adenoma [Unknown]
  - Primary hyperaldosteronism [Unknown]
